FAERS Safety Report 4519781-1 (Version None)
Quarter: 2004Q4

REPORT INFORMATION
  Report Type: 
  Country: None (occurrence: None)
  Receive Date: 20041201
  Receipt Date: 20041201
  Transmission Date: 20050328
  Serious: Yes (Other)
  Sender: FDA-Public Use
  Company Number: None

PATIENT
  Age: 42 Year
  Sex: Male
  Weight: 103.4201 kg

DRUGS (2)
  1. IMIPRAMINE HCL 50 MG SANDOZ [Suspect]
     Indication: DEPRESSION
     Dosage: 50 MG X 1 TAB
     Dates: start: 20041025, end: 20041026
  2. IMIPRAMINE HCL 50 MG SANDOZ [Suspect]
     Indication: URINARY INCONTINENCE
     Dosage: 50 MG X 1 TAB
     Dates: start: 20041025, end: 20041026

REACTIONS (5)
  - BRAIN DAMAGE [None]
  - HEADACHE [None]
  - IRRITABILITY [None]
  - NERVOUSNESS [None]
  - SUSPICIOUSNESS [None]
